FAERS Safety Report 5397032-6 (Version None)
Quarter: 2007Q3

REPORT INFORMATION
  Report Type: 
  Country: None (occurrence: None)
  Receive Date: 20070725
  Receipt Date: 20070717
  Transmission Date: 20080115
  Serious: Yes (Disabling)
  Sender: FDA-Public Use
  Company Number: FR-GENENTECH-240225

PATIENT
  Sex: Female

DRUGS (5)
  1. MABTHERA [Suspect]
     Indication: RHEUMATOID ARTHRITIS
     Dosage: 1 G, UNK
     Route: 042
     Dates: start: 20061205, end: 20061221
  2. METHOTREXATE [Suspect]
     Indication: RHEUMATOID ARTHRITIS
     Dosage: 1 G, QD
     Route: 042
     Dates: start: 20061221
  3. NEXEN [Concomitant]
     Indication: RHEUMATOID ARTHRITIS
  4. DOLIPRANE [Concomitant]
     Indication: RHEUMATOID ARTHRITIS
  5. SPECIAFOLDINE [Concomitant]
     Indication: RHEUMATOID ARTHRITIS

REACTIONS (2)
  - EYE HAEMORRHAGE [None]
  - VITREOUS DETACHMENT [None]
